FAERS Safety Report 8319859-0 (Version None)
Quarter: 2012Q2

REPORT INFORMATION
  Report Type: 
  Country: None (occurrence: None)
  Receive Date: 20120427
  Receipt Date: 20120424
  Transmission Date: 20120825
  Serious: No
  Sender: FDA-Public Use
  Company Number: US-PFIZER INC-2012101651

PATIENT
  Sex: Female
  Weight: 106 kg

DRUGS (4)
  1. IBUPROFEN (ADVIL) [Suspect]
     Dosage: 400 MG, DAILY
     Dates: end: 20120424
  2. ARIMIDEX [Concomitant]
     Indication: BREAST CANCER FEMALE
     Dosage: 1 MG, DAILY
  3. METFORMIN [Concomitant]
     Dosage: 500 MG, DAILY
  4. LEVOTHYROXINE [Concomitant]
     Indication: THYROID DISORDER
     Dosage: 125 UG, DAILY

REACTIONS (1)
  - MALAISE [None]
